FAERS Safety Report 8923998 (Version 3)
Quarter: 2012Q4

REPORT INFORMATION
  Report Type: 
  Country: BG (occurrence: BG)
  Receive Date: 20121126
  Receipt Date: 20121217
  Transmission Date: 20130627
  Serious: Yes (Other)
  Sender: FDA-Public Use
  Company Number: BG-ROCHE-1159552

PATIENT
  Age: 51 Year
  Sex: Male

DRUGS (2)
  1. ALTEPLASE [Suspect]
     Indication: ISCHAEMIC STROKE
     Dosage: 10% as bolus
     Route: 042
  2. ACE-INHIBITOR [Concomitant]
     Indication: HYPERTENSION

REACTIONS (5)
  - Carotid artery thrombosis [Unknown]
  - Neurological decompensation [Unknown]
  - Hemiplegia [Unknown]
  - Aphasia [Unknown]
  - Haemorrhagic infarction [Unknown]
